FAERS Safety Report 8581191-8 (Version None)
Quarter: 2012Q3

REPORT INFORMATION
  Report Type: 
  Country: None (occurrence: None)
  Receive Date: 20120809
  Receipt Date: 20120731
  Transmission Date: 20120928
  Serious: Yes (Other)
  Sender: FDA-Public Use
  Company Number: US-BAYER-2012-046195

PATIENT
  Age: 23 Year
  Sex: Female
  Weight: 63.946 kg

DRUGS (11)
  1. YAZ [Suspect]
  2. CELEXA [Concomitant]
     Dosage: 10 MG, DAILY
     Route: 048
     Dates: start: 20090401
  3. YASMIN [Suspect]
  4. VICODIN [Concomitant]
     Indication: HEADACHE
     Dosage: 5/325
     Dates: start: 20090303
  5. IBUPROFEN [Concomitant]
     Indication: ALVEOLAR OSTEITIS
     Dosage: 800 MG, TID
     Dates: start: 20090303, end: 20090401
  6. TRILEPTAL [Concomitant]
     Dosage: 300 MG, UNK
     Route: 048
     Dates: start: 20090401, end: 20090513
  7. DICLOXACILLIN [Concomitant]
  8. CITALOPRAM HYDROBROMIDE [Concomitant]
     Dosage: 20 MG, DAILY
     Route: 048
     Dates: start: 20090203
  9. ATIVAN [Concomitant]
     Dosage: 0.5 MG, TID AS NEEDED
     Route: 048
     Dates: start: 20090401
  10. TYLENOL [Concomitant]
     Indication: ALVEOLAR OSTEITIS
     Dosage: UNK
     Dates: start: 20090303
  11. HYDROXYZINE [Concomitant]
     Dosage: 25 MG, QID,AS NEEDED
     Route: 048
     Dates: start: 20090401

REACTIONS (8)
  - DEEP VEIN THROMBOSIS [None]
  - PAIN [None]
  - ANHEDONIA [None]
  - FEAR [None]
  - ANXIETY [None]
  - QUALITY OF LIFE DECREASED [None]
  - INJURY [None]
  - THROMBOPHLEBITIS SUPERFICIAL [None]
